FAERS Safety Report 6018414-5 (Version None)
Quarter: 2008Q4

REPORT INFORMATION
  Report Type: 
  Country: None (occurrence: None)
  Receive Date: 20081223
  Receipt Date: 20081218
  Transmission Date: 20090506
  Serious: Yes (Other)
  Sender: FDA-Public Use
  Company Number: US-JNJCH-2008057796

PATIENT
  Age: 99 Year
  Sex: Female
  Weight: 77.1 kg

DRUGS (1)
  1. NEOSPORIN [Suspect]
     Indication: SKIN IRRITATION
     Dosage: TEXT:ENOUGH TO COVER
     Route: 061

REACTIONS (3)
  - BLISTER [None]
  - INCORRECT DRUG ADMINISTRATION DURATION [None]
  - WOUND SECRETION [None]
